FAERS Safety Report 7361912-2 (Version None)
Quarter: 2011Q1

REPORT INFORMATION
  Report Type: 
  Country: None (occurrence: None)
  Receive Date: 20110318
  Receipt Date: 20110316
  Transmission Date: 20110831
  Serious: Yes (Death, Other)
  Sender: FDA-Public Use
  Company Number: HK-BRISTOL-MYERS SQUIBB COMPANY-15605744

PATIENT
  Age: 7 Year
  Sex: Female

DRUGS (4)
  1. ETOPOSIDE [Suspect]
     Indication: PITUITARY TUMOUR
  2. BLEOMYCIN SULFATE [Suspect]
     Indication: PITUITARY TUMOUR
  3. CISPLATIN [Suspect]
     Indication: PITUITARY TUMOUR
  4. CARBOPLATIN [Suspect]
     Indication: PITUITARY TUMOUR

REACTIONS (2)
  - NEOPLASM MALIGNANT [None]
  - POSTERIOR REVERSIBLE ENCEPHALOPATHY SYNDROME [None]
